FAERS Safety Report 11216555 (Version 1)
Quarter: 2015Q2

REPORT INFORMATION
  Report Type: Spontaneous
  Country: US (occurrence: US)
  Receive Date: 20150624
  Receipt Date: 20150624
  Transmission Date: 20150821
  Serious: No
  Sender: FDA-Public Use
  Company Number: US-ELI_LILLY_AND_COMPANY-US201506007768

PATIENT
  Sex: Female

DRUGS (9)
  1. PROBIOTIC                          /06395501/ [Concomitant]
  2. WARFARIN [Concomitant]
     Active Substance: WARFARIN
     Dosage: 5 MG, 2/W
  3. HUMALOG [Suspect]
     Active Substance: INSULIN LISPRO
     Indication: TYPE 2 DIABETES MELLITUS
     Dosage: 20 U, TID
     Route: 065
  4. RANITIDINE [Concomitant]
     Active Substance: RANITIDINE\RANITIDINE HYDROCHLORIDE
     Dosage: 150 MG, BID
  5. WARFARIN [Concomitant]
     Active Substance: WARFARIN
     Dosage: 7.5 MG, QOD
  6. EQUATE WOMEN^S 50 PLUS ONE DAILY [Concomitant]
  7. GLUCOSAMINE [Concomitant]
     Active Substance: GLUCOSAMINE
     Dosage: UNK, BID
  8. FISH OIL [Concomitant]
     Active Substance: FISH OIL
     Dosage: 1000 MG, UNK
  9. NITROSTAT [Concomitant]
     Active Substance: NITROGLYCERIN
     Dosage: 4 MG, UNK

REACTIONS (3)
  - Blood glucose increased [Unknown]
  - Nausea [Recovered/Resolved]
  - Vomiting [Recovered/Resolved]
